FAERS Safety Report 8515126-0 (Version None)
Quarter: 2012Q3

REPORT INFORMATION
  Report Type: 
  Country: None (occurrence: None)
  Receive Date: 20120717
  Receipt Date: 20120709
  Transmission Date: 20120928
  Serious: Yes (Other)
  Sender: FDA-Public Use
  Company Number: US-ASTRAZENECA-2012SE46762

PATIENT
  Age: 80 Year
  Sex: Female
  Weight: 68 kg

DRUGS (3)
  1. ZIAC [Concomitant]
     Indication: BLOOD PRESSURE ABNORMAL
     Route: 048
  2. PRILOSEC [Suspect]
     Indication: GASTROOESOPHAGEAL REFLUX DISEASE
     Route: 048
     Dates: start: 20070101
  3. PRILOSEC [Suspect]
     Route: 048

REACTIONS (3)
  - OSTEOPOROSIS [None]
  - HAND FRACTURE [None]
  - FALL [None]
